FAERS Safety Report 20990503 (Version 1)
Quarter: 2022Q2

REPORT INFORMATION
  Report Type: Other
  Country: AU (occurrence: AU)
  Receive Date: 20220622
  Receipt Date: 20220622
  Transmission Date: 20220720
  Serious: Yes (Hospitalization, Other)
  Sender: FDA-Public Use
  Company Number: AU-TOLMAR, INC.-22AU034635

PATIENT
  Age: 71 Year
  Sex: Male

DRUGS (1)
  1. ELIGARD [Suspect]
     Active Substance: LEUPROLIDE ACETATE
     Indication: Prostate cancer
     Dosage: 45 MILLIGRAM, Q 6 MONTH
     Dates: start: 20210602

REACTIONS (4)
  - Intestinal perforation [Not Recovered/Not Resolved]
  - Appendicitis [Not Recovered/Not Resolved]
  - Colon cancer [Unknown]
  - Abscess rupture [Unknown]

NARRATIVE: CASE EVENT DATE: 20220422
